FAERS Safety Report 6080366-X (Version None)
Quarter: 2009Q1

REPORT INFORMATION
  Report Type: 
  Country: None (occurrence: None)
  Receive Date: 20090217
  Receipt Date: 20090202
  Transmission Date: 20090719
  Serious: Yes (Death, Hospitalization)
  Sender: FDA-Public Use
  Company Number: FR-GENENTECH-276415

PATIENT
  Sex: Male

DRUGS (3)
  1. MABTHERA [Suspect]
     Indication: LYMPHOMA
     Route: 065
  2. ENDOXAN [Suspect]
     Indication: LYMPHOMA
     Route: 065
  3. FLUDARABINE PHOSPHATE [Suspect]
     Indication: LYMPHOMA
     Route: 065

REACTIONS (1)
  - BONE MARROW FAILURE [None]
